FAERS Safety Report 15736776 (Version 4)
Quarter: 2025Q2

REPORT INFORMATION
  Report Type: Spontaneous
  Country: JP (occurrence: JP)
  Receive Date: 20181218
  Receipt Date: 20250507
  Transmission Date: 20250717
  Serious: Yes (Other)
  Sender: LUNDBECK
  Company Number: JP-SANOFI-2016SA222274

PATIENT
  Age: 6 Year
  Sex: Male
  Weight: 20 kg

DRUGS (12)
  1. SABRIL [Suspect]
     Active Substance: VIGABATRIN
     Indication: Infantile spasms
     Dosage: 500 MG, BID
     Route: 048
     Dates: start: 20161104, end: 20161107
  2. SABRIL [Suspect]
     Active Substance: VIGABATRIN
     Dosage: 750 MG, BID
     Route: 048
     Dates: start: 20161108, end: 20161111
  3. SABRIL [Suspect]
     Active Substance: VIGABATRIN
     Dosage: 1000 MG, BID
     Route: 048
     Dates: start: 20161112, end: 20161115
  4. SABRIL [Suspect]
     Active Substance: VIGABATRIN
     Dosage: 1250 MG, BID
     Route: 048
     Dates: start: 20161116, end: 20161213
  5. SABRIL [Suspect]
     Active Substance: VIGABATRIN
     Dosage: 1500 MG, BID
     Route: 048
     Dates: start: 20161214
  6. SABRIL [Suspect]
     Active Substance: VIGABATRIN
     Dosage: 1500 MG, BID
     Route: 048
     Dates: start: 20161228, end: 20170601
  7. VALPROATE SODIUM [Concomitant]
     Active Substance: VALPROATE SODIUM
     Indication: Infantile spasms
     Dosage: 400 MG, QD
     Route: 048
     Dates: start: 2013
  8. INOVELON [Concomitant]
     Active Substance: RUFINAMIDE
     Indication: Infantile spasms
     Dosage: 1000 MG, QD
     Route: 048
     Dates: start: 201406, end: 20170112
  9. INOVELON [Concomitant]
     Active Substance: RUFINAMIDE
     Dosage: 1000MG/DAY
     Route: 048
     Dates: end: 20161130
  10. SODIUM PICOSULFATE [Concomitant]
     Active Substance: SODIUM PICOSULFATE
     Indication: Product used for unknown indication
     Route: 048
     Dates: end: 2016
  11. SODIUM PICOSULFATE [Concomitant]
     Active Substance: SODIUM PICOSULFATE
     Route: 048
     Dates: start: 20170406
  12. VALPROATE SODIUM [Concomitant]
     Active Substance: VALPROATE SODIUM
     Indication: Infantile spasms

REACTIONS (2)
  - Retinogram abnormal [Unknown]
  - Agitation [Recovered/Resolved]

NARRATIVE: CASE EVENT DATE: 20161118
